FAERS Safety Report 26196909 (Version 1)
Quarter: 2025Q4

REPORT INFORMATION
  Report Type: Spontaneous
  Country: BR (occurrence: BR)
  Receive Date: 20251224
  Receipt Date: 20251224
  Transmission Date: 20260119
  Serious: Yes (Hospitalization, Other)
  Sender: ABBVIE
  Company Number: BR-ABBVIE-6605183

PATIENT
  Age: 88 Year
  Sex: Male
  Weight: 55 kg

DRUGS (2)
  1. ALPHAGAN P [Suspect]
     Active Substance: BRIMONIDINE TARTRATE
     Indication: Glaucoma
     Dosage: BOTTLE WITH 5 ML?ONE DROP EVERY 12 HOURS IN BOTH EYES
     Route: 061
     Dates: start: 2005
  2. TRAVATAN [Concomitant]
     Active Substance: TRAVOPROST
     Indication: Product used for unknown indication
     Dosage: EVERY 24 HOURS IN BOTH EYES
     Route: 065
     Dates: start: 2005

REACTIONS (11)
  - Cerebrovascular accident [Unknown]
  - Blindness unilateral [Unknown]
  - Influenza [Recovered/Resolved]
  - Eye laser surgery [Unknown]
  - Haemorrhage [Unknown]
  - Ocular hyperaemia [Unknown]
  - Intraocular pressure increased [Unknown]
  - Ocular discomfort [Unknown]
  - Pancreatic disorder [Unknown]
  - Diabetes mellitus inadequate control [Unknown]
  - Feeding disorder [Unknown]
